FAERS Safety Report 5576171-0 (Version None)
Quarter: 2007Q4

REPORT INFORMATION
  Report Type: 
  Country: None (occurrence: None)
  Receive Date: 20071228
  Receipt Date: 20070731
  Transmission Date: 20080405
  Serious: No
  Sender: FDA-Public Use
  Company Number: US-BAYER-200711822BCC

PATIENT
  Age: 26 Year
  Sex: Female
  Weight: 58 kg

DRUGS (4)
  1. ALEVE [Suspect]
     Indication: MUSCULOSKELETAL PAIN
     Dosage: TOTAL DAILY DOSE: 220 MG  UNIT DOSE: 220 MG
     Route: 048
     Dates: start: 20070501
  2. ALEVE [Suspect]
     Dosage: TOTAL DAILY DOSE: 440 MG  UNIT DOSE: 220 MG
     Route: 048
     Dates: start: 20070501
  3. ALEVE [Suspect]
     Route: 048
  4. ZYRTEC-D [Concomitant]
     Dates: start: 20070707

REACTIONS (1)
  - MUSCULOSKELETAL PAIN [None]
